FAERS Safety Report 11182210 (Version 3)
Quarter: 2016Q3

REPORT INFORMATION
  Report Type: Report from Study
  Country: DE (occurrence: NL)
  Receive Date: 20150611
  Receipt Date: 20160712
  Transmission Date: 20161109
  Serious: Yes (Hospitalization)
  Sender: FDA-Public Use
  Company Number: DE-ACTELION-A-US2015-119414

PATIENT
  Age: 65 Year
  Sex: Female

DRUGS (2)
  1. VENTAVIS [Suspect]
     Active Substance: ILOPROST
     Indication: PULMONARY ARTERIAL HYPERTENSION
     Dosage: 5 MCG, 6 TIMES DAILY
     Route: 055
     Dates: start: 20141014
  2. VENTAVIS [Suspect]
     Active Substance: ILOPROST
     Dosage: UNK, TID
     Route: 055

REACTIONS (4)
  - Hypotension [Unknown]
  - Headache [Unknown]
  - Haemoglobin decreased [Unknown]
  - Off label use [Unknown]

NARRATIVE: CASE EVENT DATE: 20150327
